FAERS Safety Report 20658442 (Version 2)
Quarter: 2022Q2

REPORT INFORMATION
  Report Type: Report from Study
  Country: US (occurrence: US)
  Receive Date: 20220331
  Receipt Date: 20220502
  Transmission Date: 20220721
  Serious: Yes (Hospitalization, Other)
  Sender: FDA-Public Use
  Company Number: US-GSKCCFUS-Case-01331038_AE-77384

PATIENT
  Sex: Female

DRUGS (2)
  1. BELIMUMAB [Suspect]
     Active Substance: BELIMUMAB
     Indication: Systemic lupus erythematosus
     Dosage: UNK
  2. BELIMUMAB [Suspect]
     Active Substance: BELIMUMAB
     Indication: Systemic lupus erythematosus
     Dosage: UNK

REACTIONS (10)
  - Arthropathy [Recovered/Resolved]
  - Myelitis transverse [Not Recovered/Not Resolved]
  - Systemic lupus erythematosus [Recovering/Resolving]
  - Condition aggravated [Unknown]
  - Myalgia [Unknown]
  - Loss of personal independence in daily activities [Unknown]
  - Bedridden [Recovering/Resolving]
  - Product dose omission issue [Unknown]
  - Therapeutic product effect incomplete [Recovered/Resolved]
  - Therapeutic response unexpected [Unknown]
